FAERS Safety Report 8980316 (Version 1)
Quarter: 2012Q4

REPORT INFORMATION
  Report Type: 
  Country: CH (occurrence: CH)
  Receive Date: 20121221
  Receipt Date: 20121221
  Transmission Date: 20130627
  Serious: Yes (Hospitalization)
  Sender: FDA-Public Use
  Company Number: PHHY2012CH114419

PATIENT
  Sex: Female

DRUGS (18)
  1. SIRDALUD [Suspect]
     Dosage: 4 mg, QD
     Route: 048
  2. SIRDALUD [Suspect]
     Dosage: UNK UKN, UNK
  3. EXFORGE HCT [Suspect]
     Indication: ESSENTIAL HYPERTENSION
     Dosage: 1 DF (160 mg val/ 5 mg amlo/ 25 mg HCT)
     Route: 048
  4. RIVOTRIL [Suspect]
     Dosage: 2 mg BID
     Route: 048
  5. CIPRALEX [Suspect]
     Dosage: 10 mg BID
     Route: 048
  6. CIPRALEX [Suspect]
     Dosage: UNK UKN, UNK
  7. HALCION [Suspect]
     Dosage: 0.25 mg QD
     Route: 048
  8. HALCION [Suspect]
     Dosage: UNK UKN, UNK
  9. XANAX [Suspect]
     Dosage: 1 mg TID
     Route: 048
  10. XANAX [Suspect]
     Dosage: UNK UKN, UNK
  11. TEMESTA [Suspect]
     Dosage: 2.5 mg QID
     Route: 048
  12. TEMESTA [Suspect]
     Dosage: UNK UKN, UNK
  13. SEROQUEL [Suspect]
     Dosage: 150 mg QD
     Route: 048
  14. SEROQUEL [Suspect]
     Dosage: UNK UKN, UNK
  15. ASPIRIN CARDIO [Concomitant]
     Dosage: 100 mg, QW
     Route: 048
  16. MAG 2 [Concomitant]
     Route: 048
  17. OMEPRAZOLE [Concomitant]
     Dosage: 40 mg BID
     Route: 048
  18. MOVICOL [Concomitant]

REACTIONS (13)
  - Spinal compression fracture [Unknown]
  - Back pain [Unknown]
  - Muscular weakness [Unknown]
  - Balance disorder [Unknown]
  - Spinal cord compression [Unknown]
  - Hypokalaemia [Recovered/Resolved]
  - Hyponatraemia [Recovered/Resolved]
  - Inflammation [Unknown]
  - Leukocytosis [Unknown]
  - C-reactive protein increased [Unknown]
  - Fall [Recovered/Resolved]
  - Electrocardiogram QT prolonged [Recovered/Resolved]
  - Nitrite urine present [Unknown]
